FAERS Safety Report 18883955 (Version 1)
Quarter: 2021Q1

REPORT INFORMATION
  Report Type: Spontaneous
  Country: IN (occurrence: IN)
  Receive Date: 20210212
  Receipt Date: 20210212
  Transmission Date: 20210420
  Serious: Yes (Hospitalization, Other)
  Sender: FDA-Public Use
  Company Number: IN-SUN PHARMACEUTICAL INDUSTRIES LTD-2021R1-280046

PATIENT
  Age: 38 Year
  Sex: Male
  Weight: 61 kg

DRUGS (7)
  1. TRAMADOL. [Suspect]
     Active Substance: TRAMADOL
     Indication: FEELING OF RELAXATION
  2. ALPRAZOLAM. [Suspect]
     Active Substance: ALPRAZOLAM
     Indication: EUPHORIC MOOD
  3. SILDENAFIL. [Suspect]
     Active Substance: SILDENAFIL
     Indication: SEXUAL ACTIVITY INCREASED
  4. TRAMADOL. [Suspect]
     Active Substance: TRAMADOL
     Indication: EUPHORIC MOOD
     Dosage: UNK (25 TO 30 TABLETS)
     Route: 065
  5. SILDENAFIL. [Suspect]
     Active Substance: SILDENAFIL
     Indication: EUPHORIC MOOD
     Dosage: 50 MILLIGRAM (1 TO 2 TABLETS )
     Route: 065
  6. ALPRAZOLAM. [Suspect]
     Active Substance: ALPRAZOLAM
     Indication: FEELING OF RELAXATION
     Dosage: UNK (40 TO 50 TABLETS)
     Route: 065
  7. SILDENAFIL. [Suspect]
     Active Substance: SILDENAFIL
     Indication: FEELING OF RELAXATION
     Dosage: UNK, DAILY (10 TO 12 TABLETS )
     Route: 065

REACTIONS (4)
  - Drug use disorder [Recovering/Resolving]
  - Headache [Recovering/Resolving]
  - Intentional product misuse [Unknown]
  - Vision blurred [Recovering/Resolving]
